FAERS Safety Report 8867170 (Version 1)
Quarter: 2012Q4

REPORT INFORMATION
  Report Type: 
  Country: US (occurrence: US)
  Receive Date: 20121025
  Receipt Date: 20121025
  Transmission Date: 20130627
  Serious: No
  Sender: FDA-Public Use
  Company Number: US-AMGEN-USASP2012015208

PATIENT
  Age: 53 Year
  Sex: Female

DRUGS (3)
  1. ENBREL [Suspect]
     Dosage: 50 mg, qwk
     Route: 058
  2. INDERAL [Concomitant]
     Dosage: 10 mg, UNK
  3. CELEXA                             /00582602/ [Concomitant]
     Dosage: 10 mg, UNK

REACTIONS (2)
  - Injection site mass [Unknown]
  - Injection site erythema [Unknown]
